FAERS Safety Report 8869622 (Version 1)
Quarter: 2012Q4

REPORT INFORMATION
  Report Type: Spontaneous
  Country: US (occurrence: None)
  Receive Date: 20121031
  Receipt Date: 20121031
  Transmission Date: 20130627
  Serious: Yes (Life-Threatening)
  Sender: FDA-Public Use
  Company Number: None

PATIENT
  Age: 42 Year
  Sex: Male
  Weight: 78.93 kg

DRUGS (3)
  1. METHYLPREDNISOLONE ACETATE [Suspect]
     Indication: INTERVERTEBRAL DISC HERNIATION
     Route: 008
     Dates: start: 20120921, end: 20120921
  2. METHYLPREDNISOLONE ACETATE [Suspect]
     Indication: INTERVERTEBRAL DISC HERNIATION
  3. METHYLPREDNISONE ACETATE [Suspect]

REACTIONS (1)
  - No adverse event [None]
